FAERS Safety Report 6544539-1 (Version None)
Quarter: 2010Q1

REPORT INFORMATION
  Report Type: 
  Country: None (occurrence: None)
  Receive Date: 20100121
  Receipt Date: 20100108
  Transmission Date: 20100710
  Serious: Yes (Other)
  Sender: FDA-Public Use
  Company Number: BR-BAYER-201010220LA

PATIENT
  Age: 74 Year
  Sex: Female

DRUGS (1)
  1. ADALAT [Suspect]
     Indication: DRUG USE FOR UNKNOWN INDICATION
     Route: 048

REACTIONS (2)
  - BLOOD PRESSURE DECREASED [None]
  - MYOCARDIAL INFARCTION [None]
